FAERS Safety Report 4637744-2 (Version None)
Quarter: 2005Q2

REPORT INFORMATION
  Report Type: 
  Country: None (occurrence: None)
  Receive Date: 20050418
  Receipt Date: 20050323
  Transmission Date: 20051028
  Serious: Yes (Hospitalization)
  Sender: FDA-Public Use
  Company Number: DE-AMGEN-UK122650

PATIENT
  Age: 54 Year
  Sex: Female
  Weight: 62 kg

DRUGS (10)
  1. MIMPARA [Suspect]
     Indication: HYPERPARATHYROIDISM SECONDARY
     Route: 048
     Dates: start: 20050124, end: 20050305
  2. BEXTRA [Suspect]
     Route: 048
     Dates: start: 20041101, end: 20050305
  3. CALCIUM ACETATE [Concomitant]
     Route: 048
  4. VITAMIN D [Concomitant]
     Route: 065
  5. NEXIUM [Concomitant]
     Route: 048
  6. METOPROLOL TARTRATE [Concomitant]
     Route: 048
  7. SAROTEN [Concomitant]
     Route: 048
  8. ATORVASTATIN CALCIUM [Concomitant]
     Route: 048
  9. CALCITRIOL [Concomitant]
     Route: 048
  10. COLECALCIFEROL [Concomitant]
     Route: 065

REACTIONS (5)
  - BLOOD PARATHYROID HORMONE DECREASED [None]
  - HYPOCALCAEMIA [None]
  - HYPOTENSION [None]
  - OPTIC ISCHAEMIC NEUROPATHY [None]
  - VERTIGO [None]
